FAERS Safety Report 5590193-5 (Version None)
Quarter: 2008Q1

REPORT INFORMATION
  Report Type: 
  Country: None (occurrence: None)
  Receive Date: 20080114
  Receipt Date: 20080108
  Transmission Date: 20080703
  Serious: Yes (Other)
  Sender: FDA-Public Use
  Company Number: GB-AVENTIS-200720532GDDC

PATIENT
  Age: 64 Year
  Sex: Female

DRUGS (9)
  1. LANTUS [Suspect]
     Route: 058
     Dates: start: 20070307
  2. METFORMIN HCL [Concomitant]
     Route: 048
     Dates: start: 20040524
  3. ATORVASTATIN [Concomitant]
     Route: 048
     Dates: start: 20040524
  4. LEVOTHYROXINE SODIUM [Concomitant]
     Route: 048
     Dates: start: 20050331
  5. RALOXIFENE HCL [Concomitant]
     Indication: MENOPAUSE
     Route: 048
     Dates: start: 20060919
  6. MULTI-VITAMINS [Concomitant]
     Route: 048
  7. ACIDOPHILUS [Concomitant]
     Dosage: DOSE QUANTITY: 1
  8. COD LIVER PILLS [Concomitant]
     Dosage: DOSE QUANTITY: 1
  9. GLUCOSAMINE [Concomitant]

REACTIONS (3)
  - BLOOD GLUCOSE DECREASED [None]
  - HYPERHIDROSIS [None]
  - MALAISE [None]
